FAERS Safety Report 5465114-6 (Version None)
Quarter: 2007Q3

REPORT INFORMATION
  Report Type: 
  Country: None (occurrence: None)
  Receive Date: 20070820
  Receipt Date: 20070619
  Transmission Date: 20080115
  Serious: No
  Sender: FDA-Public Use
  Company Number: TPA2007A01402

PATIENT
  Age: 45 Year
  Sex: Male
  Weight: 81.1939 kg

DRUGS (5)
  1. ROZEREM [Suspect]
     Indication: INSOMNIA
     Dosage: 1 IN 1 D, PER ORAL
     Route: 048
     Dates: start: 20070501, end: 20070101
  2. LIPITOR [Concomitant]
  3. PLAVIX [Concomitant]
  4. ZIAC [Concomitant]
  5. ASPIRIN [Concomitant]

REACTIONS (1)
  - DRUG INEFFECTIVE [None]
